FAERS Safety Report 12244591 (Version 1)
Quarter: 2016Q2

REPORT INFORMATION
  Report Type: Spontaneous
  Country: US (occurrence: US)
  Receive Date: 20160407
  Receipt Date: 20160407
  Transmission Date: 20160815
  Serious: No
  Sender: FDA-Public Use
  Company Number: US-HOSPIRA-2848206

PATIENT
  Sex: Female

DRUGS (1)
  1. CIPROFLOXACIN. [Suspect]
     Active Substance: CIPROFLOXACIN
     Indication: PRODUCT USED FOR UNKNOWN INDICATION
     Dosage: NOT APPLICABLE, NOT APPLICABLE
     Route: 050

REACTIONS (3)
  - Hypersensitivity [Recovered/Resolved]
  - Dermatitis contact [None]
  - Product container issue [Recovered/Resolved]

NARRATIVE: CASE EVENT DATE: 20150423
